FAERS Safety Report 11064678 (Version 1)
Quarter: 2015Q2

REPORT INFORMATION
  Report Type: Spontaneous
  Country: JP (occurrence: JP)
  Receive Date: 20150424
  Receipt Date: 20150424
  Transmission Date: 20150821
  Serious: Yes (Hospitalization)
  Sender: FDA-Public Use
  Company Number: JP-009507513-1504JPN021655

PATIENT
  Age: 35 Year
  Sex: Male

DRUGS (4)
  1. IPRAGLIFLOZIN [Suspect]
     Active Substance: IPRAGLIFLOZIN
     Indication: TYPE 2 DIABETES MELLITUS
     Dosage: 50 MG, PER DAY
     Route: 048
     Dates: start: 201408, end: 20140926
  2. GLACTIV [Suspect]
     Active Substance: SITAGLIPTIN
     Indication: TYPE 2 DIABETES MELLITUS
     Dosage: 25 MG, ONCE A DAY
     Route: 048
  3. METFORMIN HYDROCHLORIDE. [Concomitant]
     Active Substance: METFORMIN HYDROCHLORIDE
     Dosage: 1,500 MG PER DAY
  4. IPRAGLIFLOZIN [Suspect]
     Active Substance: IPRAGLIFLOZIN
     Dosage: 100 MG, PER DAY
     Route: 048
     Dates: start: 20140927

REACTIONS (2)
  - Ketoacidosis [Unknown]
  - Dehydration [Unknown]

NARRATIVE: CASE EVENT DATE: 20140929
